FAERS Safety Report 5791770-9 (Version None)
Quarter: 2008Q2

REPORT INFORMATION
  Report Type: 
  Country: None (occurrence: None)
  Receive Date: 20080626
  Receipt Date: 20080310
  Transmission Date: 20081010
  Serious: No
  Sender: FDA-Public Use
  Company Number: A0714300A

PATIENT
  Sex: Female

DRUGS (1)
  1. ALLI [Suspect]
     Indication: DRUG USE FOR UNKNOWN INDICATION

REACTIONS (5)
  - ABNORMAL FAECES [None]
  - BLOOD PRESSURE ABNORMAL [None]
  - FLATULENCE [None]
  - METRORRHAGIA [None]
  - THERAPEUTIC RESPONSE UNEXPECTED [None]
